FAERS Safety Report 6243419-9 (Version None)
Quarter: 2009Q2

REPORT INFORMATION
  Report Type: 
  Country: None (occurrence: None)
  Receive Date: 20090622
  Receipt Date: 20090622
  Transmission Date: 20091009
  Serious: No
  Sender: FDA-Public Use
  Company Number: None

PATIENT
  Age: 54 Year
  Sex: Female
  Weight: 70.3075 kg

DRUGS (1)
  1. ZICAM [Suspect]
     Indication: NASOPHARYNGITIS
     Dosage: SMALL AMOUNT JUST INSIDE NOSE
     Dates: start: 19990101, end: 20020101

REACTIONS (2)
  - ANOSMIA [None]
  - HYPOSMIA [None]
